FAERS Safety Report 8285873-7 (Version None)
Quarter: 2012Q2

REPORT INFORMATION
  Report Type: 
  Country: None (occurrence: None)
  Receive Date: 20120413
  Receipt Date: 20120404
  Transmission Date: 20120825
  Serious: Yes (Hospitalization, Other)
  Sender: FDA-Public Use
  Company Number: CA-ELI_LILLY_AND_COMPANY-CA201202003569

PATIENT
  Age: 96 Year
  Sex: Female

DRUGS (16)
  1. TEMAZEPAM [Concomitant]
     Dosage: 15 MG, UNK
  2. CHLORTHALIDONE [Concomitant]
     Dosage: 25 MG, UNK
  3. PREMARIN [Concomitant]
     Dosage: 0.5 MG, UNK
  4. NORVASC [Concomitant]
     Dosage: 10 MG, UNK
  5. OSCAL                              /00751519/ [Concomitant]
     Dosage: 500 MG, UNK
  6. ACCUPRIL [Concomitant]
  7. SENOKOT [Concomitant]
  8. COLACE [Concomitant]
  9. COENZYME [Concomitant]
  10. FORTEO [Suspect]
     Indication: OSTEOPOROSIS
     Dosage: 20 UG, QD
     Route: 058
     Dates: start: 20110506
  11. ASPIRIN [Concomitant]
  12. SYNTHROID [Concomitant]
  13. POTASSIUM CHLORIDE [Concomitant]
  14. TYLENOL (CAPLET) [Concomitant]
  15. REMERON [Concomitant]
     Dosage: 30 MG, UNK
  16. PRAVACHOL [Concomitant]

REACTIONS (3)
  - MENTAL STATUS CHANGES [None]
  - FALL [None]
  - UPPER LIMB FRACTURE [None]
